FAERS Safety Report 25222412 (Version 2)
Quarter: 2025Q2

REPORT INFORMATION
  Report Type: Spontaneous
  Country: US (occurrence: US)
  Receive Date: 20250421
  Receipt Date: 20250425
  Transmission Date: 20250717
  Serious: No
  Sender: ABBVIE
  Company Number: US-ABBVIE-6240292

PATIENT
  Age: 54 Year
  Sex: Male

DRUGS (1)
  1. VYALEV [Suspect]
     Active Substance: FOSCARBIDOPA\FOSLEVODOPA
     Indication: Product used for unknown indication
     Route: 058

REACTIONS (6)
  - Burning sensation [Not Recovered/Not Resolved]
  - Infusion site pain [Recovering/Resolving]
  - Skin laceration [Not Recovered/Not Resolved]
  - Infusion site infection [Recovered/Resolved]
  - Infusion site induration [Not Recovered/Not Resolved]
  - Infusion site bruising [Not Recovered/Not Resolved]

NARRATIVE: CASE EVENT DATE: 20240101
